FAERS Safety Report 21292267 (Version 2)
Quarter: 2022Q3

REPORT INFORMATION
  Report Type: Spontaneous
  Country: US (occurrence: None)
  Receive Date: 20220905
  Receipt Date: 20220907
  Transmission Date: 20221026
  Serious: No
  Sender: FDA-Public Use
  Company Number: 2022A303574

PATIENT
  Age: 26623 Day
  Sex: Female
  Weight: 58.1 kg

DRUGS (1)
  1. SYMBICORT [Suspect]
     Active Substance: BUDESONIDE\FORMOTEROL FUMARATE DIHYDRATE
     Indication: Bronchospasm
     Dosage: 160/4.5MCG, DAILY
     Route: 055

REACTIONS (14)
  - Chills [Recovered/Resolved]
  - Pain [Unknown]
  - Glassy eyes [Unknown]
  - Feeling abnormal [Unknown]
  - Asthenia [Unknown]
  - Appetite disorder [Unknown]
  - Secretion discharge [Unknown]
  - Sinusitis [Unknown]
  - Wheezing [Unknown]
  - Coronavirus test negative [Unknown]
  - Insomnia [Unknown]
  - Device use issue [Unknown]
  - Device use issue [Unknown]
  - Wrong technique in device usage process [Unknown]

NARRATIVE: CASE EVENT DATE: 20220827
